FAERS Safety Report 15713706 (Version 3)
Quarter: 2018Q4

REPORT INFORMATION
  Report Type: Spontaneous
  Country: US (occurrence: US)
  Receive Date: 20181212
  Receipt Date: 20181225
  Transmission Date: 20190205
  Serious: Yes (Hospitalization, Other)
  Sender: FDA-Public Use
  Company Number: US-AMGEN INC.-USASP2018176812

PATIENT
  Age: 45 Year
  Sex: Female
  Weight: 52.15 kg

DRUGS (19)
  1. TRINTELLIX [Concomitant]
     Active Substance: VORTIOXETINE HYDROBROMIDE
     Indication: DEPRESSION
     Dosage: 10 MG, UNK
     Dates: start: 20170830, end: 20181205
  2. ZOLPIDEM [Concomitant]
     Active Substance: ZOLPIDEM\ZOLPIDEM TARTRATE
     Dosage: UNK
  3. AIMOVIG [Suspect]
     Active Substance: ERENUMAB-AOOE
     Indication: MIGRAINE PROPHYLAXIS
     Dosage: 70 MG, QMO
     Route: 058
     Dates: start: 20181108, end: 20181110
  4. BENADRYL ALLERGY [Concomitant]
     Active Substance: DIPHENHYDRAMINE HYDROCHLORIDE
     Dosage: 25 MG, UNK
  5. CYANOCOBALAMIN. [Concomitant]
     Active Substance: CYANOCOBALAMIN
     Dosage: 1000 MUG, UNK
  6. IMITREX [Concomitant]
     Active Substance: SUMATRIPTAN SUCCINATE
     Dosage: 100 MG, UNK
     Dates: start: 20170830, end: 20181205
  7. BOTOX [Concomitant]
     Active Substance: ONABOTULINUMTOXINA
     Indication: MIGRAINE
     Dosage: UNK
  8. RITALIN [Concomitant]
     Active Substance: METHYLPHENIDATE HYDROCHLORIDE
     Indication: FATIGUE
  9. TIZANIDINE. [Concomitant]
     Active Substance: TIZANIDINE
     Dosage: 04 MG, UNK
     Dates: start: 20180713
  10. VALACYCLOVIR [Concomitant]
     Active Substance: VALACYCLOVIR HYDROCHLORIDE
     Dosage: 1 G, QD
     Dates: start: 20171206
  11. MELATONIN [Concomitant]
     Active Substance: MELATONIN
     Indication: INSOMNIA
     Dosage: 5 TABLETS BY MOUTH
     Route: 048
  12. OCREVUS [Suspect]
     Active Substance: OCRELIZUMAB
     Indication: MULTIPLE SCLEROSIS
     Dosage: 600 MG, Q6MO
     Route: 065
     Dates: start: 20170904
  13. ACETAMINOPHEN. [Concomitant]
     Active Substance: ACETAMINOPHEN
     Dosage: 325 MG, UNK
  14. DIAZEPAM. [Concomitant]
     Active Substance: DIAZEPAM
     Dosage: 5 MG, UNK
     Dates: start: 20180227
  15. PROMETHAZINE [Concomitant]
     Active Substance: PROMETHAZINE\PROMETHAZINE HYDROCHLORIDE
     Dosage: 25 MG, UNK
     Dates: start: 20171115
  16. MAGNESIUM GLYCINATE [Concomitant]
     Active Substance: MAGNESIUM GLYCINATE
     Dosage: UNK
     Route: 048
  17. PROVIGIL [Concomitant]
     Active Substance: MODAFINIL
     Indication: FATIGUE
     Dosage: 200 MG, QD
     Dates: start: 20180821, end: 20181205
  18. VITAMIN D3 [Concomitant]
     Active Substance: CHOLECALCIFEROL
     Dosage: 2000 UNITS
  19. COENZYME Q10 [Concomitant]
     Active Substance: UBIDECARENONE
     Dosage: 100 MG, UNK

REACTIONS (15)
  - Depression [Unknown]
  - Gingival swelling [Unknown]
  - Asthenia [Unknown]
  - Febrile neutropenia [Recovered/Resolved]
  - Ventricular tachycardia [Unknown]
  - Gingival bleeding [Unknown]
  - Drug hypersensitivity [Unknown]
  - Leukopenia [Unknown]
  - Nausea [Unknown]
  - Muscle spasms [Unknown]
  - Pain [Recovering/Resolving]
  - Tachypnoea [Unknown]
  - Normocytic anaemia [Unknown]
  - Immunosuppression [Unknown]
  - Post lumbar puncture syndrome [Recovered/Resolved]

NARRATIVE: CASE EVENT DATE: 2018
